FAERS Safety Report 13653531 (Version 1)
Quarter: 2017Q2

REPORT INFORMATION
  Report Type: Spontaneous
  Country: US (occurrence: US)
  Receive Date: 20170614
  Receipt Date: 20170614
  Transmission Date: 20170830
  Serious: No
  Sender: FDA-Public Use
  Company Number: US-ROCHE-1324101

PATIENT
  Sex: Male
  Weight: 78.54 kg

DRUGS (2)
  1. ADVIL [Concomitant]
     Active Substance: IBUPROFEN
  2. XELODA [Suspect]
     Active Substance: CAPECITABINE
     Indication: COLON CANCER
     Route: 048
     Dates: start: 20131005

REACTIONS (3)
  - Pyrexia [Unknown]
  - Skin fissures [Not Recovered/Not Resolved]
  - Blister [Not Recovered/Not Resolved]
